FAERS Safety Report 24904668 (Version 1)
Quarter: 2025Q1

REPORT INFORMATION
  Report Type: Spontaneous
  Country: US (occurrence: US)
  Receive Date: 20250130
  Receipt Date: 20250130
  Transmission Date: 20250409
  Serious: No
  Sender: Tarsus Pharmaceuticals
  Company Number: US-TARSUS PHARMACEUTICALS-TSP-US-2024-000587

PATIENT
  Sex: Female
  Weight: 58.957 kg

DRUGS (2)
  1. XDEMVY [Suspect]
     Active Substance: LOTILANER
     Indication: Demodex blepharitis
     Dosage: 1 DROP INTO EACH EYE TWICE A DAY
     Route: 047
     Dates: start: 20240813, end: 2024
  2. IVIZIA DRY EYE [Concomitant]
     Active Substance: POVIDONE
     Indication: Dry eye
     Route: 047

REACTIONS (3)
  - Visual impairment [Not Recovered/Not Resolved]
  - Condition aggravated [Unknown]
  - Irritability [Unknown]

NARRATIVE: CASE EVENT DATE: 20240101
